FAERS Safety Report 24899283 (Version 1)
Quarter: 2025Q1

REPORT INFORMATION
  Report Type: Spontaneous
  Country: US (occurrence: US)
  Receive Date: 20250129
  Receipt Date: 20250129
  Transmission Date: 20250409
  Serious: Yes (Other)
  Sender: BAYER HEALTHCARE PHARMACEUTICALS INC.
  Company Number: US-BAYER-2025A010136

PATIENT
  Age: 22 Year
  Sex: Male

DRUGS (2)
  1. KOVALTRY [Suspect]
     Active Substance: ANTIHEMOPHILIC FACTOR, HUMAN RECOMBINANT
     Route: 042
  2. KOVALTRY [Suspect]
     Active Substance: ANTIHEMOPHILIC FACTOR, HUMAN RECOMBINANT
     Route: 042

REACTIONS (3)
  - Intra-abdominal haemorrhage [None]
  - Injury [None]
  - Product solubility abnormal [None]

NARRATIVE: CASE EVENT DATE: 20250101
